FAERS Safety Report 13740798 (Version 2)
Quarter: 2017Q3

REPORT INFORMATION
  Report Type: Spontaneous
  Country: SI (occurrence: SI)
  Receive Date: 20170711
  Receipt Date: 20170726
  Transmission Date: 20171127
  Serious: Yes (Hospitalization)
  Sender: FDA-Public Use
  Company Number: SI-BIOGEN-2017BI00429410

PATIENT
  Age: 35 Year
  Sex: Female
  Weight: 84 kg

DRUGS (1)
  1. AVONEX [Suspect]
     Active Substance: INTERFERON BETA-1A
     Indication: MULTIPLE SCLEROSIS
     Route: 030
     Dates: start: 201302, end: 201312

REACTIONS (4)
  - Rhabdomyolysis [Recovered/Resolved]
  - Drug interaction [Recovered/Resolved]
  - Polyuria [Recovered/Resolved]
  - Food interaction [Recovered/Resolved]

NARRATIVE: CASE EVENT DATE: 20131216
